FAERS Safety Report 9104602 (Version 1)
Quarter: 2013Q1

REPORT INFORMATION
  Report Type: Spontaneous
  Country: US (occurrence: US)
  Receive Date: 20130219
  Receipt Date: 20130219
  Transmission Date: 20140127
  Serious: Yes (Other)
  Sender: FDA-Public Use
  Company Number: US-AMGEN-USASP2013009671

PATIENT
  Age: 28 Year
  Sex: Female

DRUGS (1)
  1. ENBREL [Suspect]
     Indication: ANKYLOSING SPONDYLITIS
     Dosage: 50 MG, QWK
     Dates: start: 20120829, end: 20130201

REACTIONS (5)
  - Gallbladder disorder [Not Recovered/Not Resolved]
  - Multi-organ disorder [Unknown]
  - Hepatomegaly [Unknown]
  - Injection site erythema [Not Recovered/Not Resolved]
  - Injection site haemorrhage [Not Recovered/Not Resolved]
